FAERS Safety Report 9170983 (Version 1)
Quarter: 2013Q1

REPORT INFORMATION
  Report Type: Spontaneous
  Country: JP (occurrence: JP)
  Receive Date: 20130319
  Receipt Date: 20130319
  Transmission Date: 20140127
  Serious: Yes (Other)
  Sender: FDA-Public Use
  Company Number: JP-ASTELLAS-2013JP003956

PATIENT
  Age: 38 Year
  Sex: Female

DRUGS (4)
  1. PROGRAF [Suspect]
     Indication: PROPHYLAXIS AGAINST GRAFT VERSUS HOST DISEASE
     Dosage: 0.6 MG, UNKNOWN/D
     Route: 048
  2. PROGRAF [Interacting]
     Indication: PROPHYLAXIS AGAINST GRAFT VERSUS HOST DISEASE
     Route: 042
  3. ROOIBOS TEA [Interacting]
     Route: 048
  4. PREDNISONE [Concomitant]
     Indication: ACUTE GRAFT VERSUS HOST DISEASE
     Dosage: 1 MG/KG, UNKNOWN/D
     Route: 065

REACTIONS (4)
  - Food interaction [Unknown]
  - Drug ineffective [Unknown]
  - Acute graft versus host disease [Recovering/Resolving]
  - Graft versus host disease [Recovering/Resolving]
